FAERS Safety Report 7041436-2 (Version None)
Quarter: 2010Q4

REPORT INFORMATION
  Report Type: 
  Country: None (occurrence: None)
  Receive Date: 20101013
  Receipt Date: 20101005
  Transmission Date: 20110411
  Serious: Yes (Other)
  Sender: FDA-Public Use
  Company Number: US-ROCHE-707218

PATIENT
  Sex: Female
  Weight: 45.4 kg

DRUGS (8)
  1. ACCUTANE [Suspect]
     Indication: ACNE
     Route: 065
     Dates: start: 20080213, end: 20080618
  2. AMNESTEEM [Suspect]
     Indication: ACNE
     Route: 065
     Dates: start: 20080101
  3. CLARAVIS [Suspect]
     Indication: ACNE
     Route: 065
     Dates: start: 20080101
  4. SOTRET [Suspect]
     Indication: ACNE
     Route: 065
     Dates: start: 20080101
  5. DIFFERIN [Concomitant]
     Indication: ACNE
  6. RETIN-A [Concomitant]
     Indication: ACNE
  7. DESOGEN [Concomitant]
  8. MONISTAT [Concomitant]

REACTIONS (10)
  - BLOOD CHOLESTEROL INCREASED [None]
  - BLOOD TRIGLYCERIDES INCREASED [None]
  - COLITIS ULCERATIVE [None]
  - GASTROINTESTINAL INFLAMMATION [None]
  - INFLAMMATORY BOWEL DISEASE [None]
  - INTESTINAL HAEMORRHAGE [None]
  - LIP DRY [None]
  - PHARYNGEAL OEDEMA [None]
  - SOMNOLENCE [None]
  - VAGINAL INFECTION [None]
